FAERS Safety Report 5605669-1 (Version None)
Quarter: 2008Q1

REPORT INFORMATION
  Report Type: 
  Country: None (occurrence: None)
  Receive Date: 20080123
  Receipt Date: 20070528
  Transmission Date: 20080703
  Serious: Yes (Hospitalization)
  Sender: FDA-Public Use
  Company Number: 64542

PATIENT
  Age: 84 Year
  Sex: Female
  Weight: 92 kg

DRUGS (2)
  1. NAPROXEN [Suspect]
     Indication: PAIN IN EXTREMITY
     Dosage: 1000MG/ X1/ORAL
     Route: 048
     Dates: start: 20070524, end: 20070524
  2. WARFARIN SODIUM [Suspect]

REACTIONS (6)
  - GASTRITIS EROSIVE [None]
  - HAEMORRHAGIC CYST [None]
  - INTERNATIONAL NORMALISED RATIO INCREASED [None]
  - OESOPHAGITIS [None]
  - RENAL IMPAIRMENT [None]
  - SYNOVIAL CYST [None]
